FAERS Safety Report 13382563 (Version 2)
Quarter: 2017Q2

REPORT INFORMATION
  Report Type: Report from Study
  Country: GB (occurrence: GB)
  Receive Date: 20170329
  Receipt Date: 20170407
  Transmission Date: 20170830
  Serious: Yes (Death)
  Sender: FDA-Public Use
  Company Number: GB-JNJFOC-20170329532

PATIENT
  Age: 56 Year
  Sex: Male

DRUGS (25)
  1. VENTOLIN [Concomitant]
     Active Substance: ALBUTEROL SULFATE
     Route: 065
     Dates: start: 20000101
  2. DIHYDROCODEINE [Concomitant]
     Active Substance: DIHYDROCODEINE
     Route: 065
     Dates: start: 20150529
  3. DOVOBET [Concomitant]
     Active Substance: BETAMETHASONE\CALCIPOTRIENE
     Route: 065
     Dates: start: 20150529
  4. COLECALCIFEROL [Concomitant]
     Active Substance: CHOLECALCIFEROL
     Route: 065
     Dates: start: 20150529
  5. MORPHINE [Concomitant]
     Active Substance: MORPHINE
     Route: 065
     Dates: start: 20150224
  6. UNIPHYLLIN CONTINUS [Concomitant]
     Active Substance: THEOPHYLLINE ANHYDROUS
     Route: 065
     Dates: start: 20160419
  7. GLICLAZIDE [Concomitant]
     Active Substance: GLICLAZIDE
     Route: 065
     Dates: start: 20100101
  8. UNIPHYLLIN CONTINUS [Concomitant]
     Active Substance: THEOPHYLLINE ANHYDROUS
     Route: 065
     Dates: start: 20160314, end: 20160321
  9. SERETIDE [Concomitant]
     Active Substance: FLUTICASONE PROPIONATE\SALMETEROL XINAFOATE
     Route: 065
     Dates: start: 20000101
  10. FOLIC ACID. [Concomitant]
     Active Substance: FOLIC ACID
     Route: 065
     Dates: start: 20150224
  11. PREDNISOLONE. [Concomitant]
     Active Substance: PREDNISOLONE
     Route: 065
     Dates: start: 20150224
  12. AMINOPHYLLINE. [Concomitant]
     Active Substance: AMINOPHYLLINE
     Route: 065
     Dates: start: 20160311, end: 20160314
  13. CARBOCISTEINE [Concomitant]
     Active Substance: CARBOCYSTEINE
     Route: 065
     Dates: start: 20160314
  14. METFORMIN [Concomitant]
     Active Substance: METFORMIN HYDROCHLORIDE
     Route: 065
     Dates: start: 20100101
  15. GABAPENTIN. [Concomitant]
     Active Substance: GABAPENTIN
     Route: 065
     Dates: start: 20100101
  16. SERTRALINE [Concomitant]
     Active Substance: SERTRALINE HYDROCHLORIDE
     Route: 065
     Dates: start: 20150224
  17. STELARA [Suspect]
     Active Substance: USTEKINUMAB
     Indication: PSORIASIS
     Route: 058
     Dates: start: 20130614, end: 20140623
  18. APREMILAST [Concomitant]
     Active Substance: APREMILAST
     Route: 065
     Dates: start: 20160419
  19. STELARA [Suspect]
     Active Substance: USTEKINUMAB
     Indication: PSORIASIS
     Route: 058
     Dates: start: 20141215, end: 20150601
  20. SIMVASTATIN. [Concomitant]
     Active Substance: SIMVASTATIN
     Route: 065
     Dates: start: 20100101
  21. TIOTROPIUM [Concomitant]
     Active Substance: TIOTROPIUM
     Route: 065
     Dates: start: 20150224
  22. FUROSEMIDE. [Concomitant]
     Active Substance: FUROSEMIDE
     Route: 065
     Dates: start: 20150224
  23. APREMILAST [Concomitant]
     Active Substance: APREMILAST
     Route: 065
     Dates: start: 20151201, end: 20160410
  24. AMINOPHYLLINE. [Concomitant]
     Active Substance: AMINOPHYLLINE
     Route: 065
     Dates: start: 20160415, end: 20160419
  25. LEVOFLOXACIN. [Concomitant]
     Active Substance: LEVOFLOXACIN
     Route: 065
     Dates: start: 20160311, end: 20160321

REACTIONS (6)
  - Obesity [Fatal]
  - Fall [Unknown]
  - Cardiac failure congestive [Fatal]
  - Hepatic cirrhosis [Fatal]
  - Chronic obstructive pulmonary disease [Fatal]
  - Cardiac arrest [Fatal]

NARRATIVE: CASE EVENT DATE: 20170130
